FAERS Safety Report 5491570-3 (Version None)
Quarter: 2007Q4

REPORT INFORMATION
  Report Type: 
  Country: None (occurrence: None)
  Receive Date: 20071018
  Receipt Date: 20071018
  Transmission Date: 20080405
  Serious: Yes (Hospitalization)
  Sender: FDA-Public Use
  Company Number: None

PATIENT
  Age: 64 Year
  Sex: Male
  Weight: 106 kg

DRUGS (7)
  1. CYCLOSPORINE [Suspect]
     Indication: ACUTE MYELOID LEUKAEMIA
     Dosage: 125MG PO Q12?
     Route: 048
  2. PREDNISONE [Concomitant]
  3. ATENOLOL [Concomitant]
  4. ENALAPRIL MALEATE [Concomitant]
  5. ACYCLOVIR [Concomitant]
  6. ALLOPURINOL [Concomitant]
  7. VANCOMYCIN [Concomitant]

REACTIONS (3)
  - DYSPNOEA [None]
  - OEDEMA PERIPHERAL [None]
  - URINE OUTPUT DECREASED [None]
